FAERS Safety Report 15125813 (Version 8)
Quarter: 2023Q4

REPORT INFORMATION
  Report Type: Report from Study
  Country: DE (occurrence: DE)
  Receive Date: 20180710
  Receipt Date: 20231102
  Transmission Date: 20240109
  Serious: Yes (Death, Disabling, Congenital Anomaly, Other)
  Sender: FDA-Public Use
  Company Number: None

PATIENT
  Weight: 0 kg

DRUGS (41)
  1. TACROLIMUS [Suspect]
     Active Substance: TACROLIMUS
     Indication: Foetal exposure during pregnancy
  2. TACROLIMUS [Suspect]
     Active Substance: TACROLIMUS
     Indication: Foetal exposure during pregnancy
     Dosage: FROM GESTATIONAL WEEK 0-14
  3. SIMVASTATIN [Suspect]
     Active Substance: SIMVASTATIN
     Indication: Foetal exposure during pregnancy
     Dosage: FROM GESTATIONAL WEEK 0-14
     Dates: start: 20111214, end: 20120320
  4. SIMVASTATIN [Suspect]
     Active Substance: SIMVASTATIN
     Indication: Foetal exposure during pregnancy
  5. SIMVASTATIN [Suspect]
     Active Substance: SIMVASTATIN
     Indication: Foetal exposure during pregnancy
     Dosage: FROM GESTATIONAL WEEK 0-14
  6. PREDNISOLONE [Suspect]
     Active Substance: PREDNISOLONE
     Indication: Foetal exposure during pregnancy
     Dosage: FROM GESTATIONAL WEEK 0-14
     Dates: start: 20111214, end: 20120320
  7. PREDNISOLONE [Suspect]
     Active Substance: PREDNISOLONE
     Indication: Foetal exposure during pregnancy
  8. PREDNISOLONE [Suspect]
     Active Substance: PREDNISOLONE
     Indication: Foetal exposure during pregnancy
     Dosage: FROM GESTATIONAL WEEK 0-14
  9. ALBUTEROL [Suspect]
     Active Substance: ALBUTEROL
     Indication: Foetal exposure during pregnancy
     Dosage: FROM GESTATIONAL WEEK 0-14
  10. ALBUTEROL [Suspect]
     Active Substance: ALBUTEROL
     Indication: Foetal exposure during pregnancy
  11. RAMIPRIL [Suspect]
     Active Substance: RAMIPRIL
     Indication: Foetal exposure during pregnancy
     Dosage: MATERNAL DOSE 20 MG, UNK
     Dates: start: 20111214, end: 20120320
  12. PANTOPRAZOLE [Suspect]
     Active Substance: PANTOPRAZOLE
     Indication: Foetal exposure during pregnancy
     Dosage: 40 [MG/D]; 0-13.6 GESTATIONAL WEEK
     Dates: start: 20111214, end: 20120320
  13. PANTOPRAZOLE [Suspect]
     Active Substance: PANTOPRAZOLE
     Indication: Foetal exposure during pregnancy
  14. PANTOPRAZOLE [Suspect]
     Active Substance: PANTOPRAZOLE
     Indication: Foetal exposure during pregnancy
     Dosage: FROM GESTATIONAL WEEK 0-14
  15. NICOTINE [Suspect]
     Active Substance: NICOTINE
     Indication: Foetal exposure during pregnancy
     Dosage: FROM GESTATIONAL WEEK 0-14
  16. NICOTINE [Suspect]
     Active Substance: NICOTINE
     Indication: Foetal exposure during pregnancy
  17. NICOTINE [Suspect]
     Active Substance: NICOTINE
     Indication: Foetal exposure during pregnancy
  18. HYDROXYCHLOROQUINE [Suspect]
     Active Substance: HYDROXYCHLOROQUINE
     Indication: Foetal exposure during pregnancy
     Dosage: FROM GESTATIONAL WEEK 0-14
     Dates: start: 20111214, end: 20120320
  19. HYDROXYCHLOROQUINE [Suspect]
     Active Substance: HYDROXYCHLOROQUINE
     Indication: Foetal exposure during pregnancy
  20. HYDROXYCHLOROQUINE [Suspect]
     Active Substance: HYDROXYCHLOROQUINE
     Indication: Foetal exposure during pregnancy
     Dosage: FROM GESTATIONAL WEEK 0-14
  21. TORSEMIDE [Suspect]
     Active Substance: TORSEMIDE
     Indication: Foetal exposure during pregnancy
     Dosage: FROM GESTATIONAL WEEK 0-14
     Dates: start: 20111214, end: 20120320
  22. TORSEMIDE [Suspect]
     Active Substance: TORSEMIDE
     Indication: Foetal exposure during pregnancy
  23. TORSEMIDE [Suspect]
     Active Substance: TORSEMIDE
     Indication: Foetal exposure during pregnancy
     Dosage: FROM GESTATIONAL WEEK 0-14
  24. METAMIZOLE [Suspect]
     Active Substance: METAMIZOLE
     Indication: Foetal exposure during pregnancy
     Dosage: FROM GESTATIONAL WEEK 0-14
  25. METAMIZOLE [Suspect]
     Active Substance: METAMIZOLE
     Indication: Foetal exposure during pregnancy
  26. EZETIMIBE [Suspect]
     Active Substance: EZETIMIBE
     Indication: Foetal exposure during pregnancy
  27. EZETIMIBE [Suspect]
     Active Substance: EZETIMIBE
     Indication: Foetal exposure during pregnancy
  28. EZETIMIBE [Suspect]
     Active Substance: EZETIMIBE
     Indication: Foetal exposure during pregnancy
     Dosage: FROM GESTATIONAL WEEK 0-14
  29. ALISKIREN [Suspect]
     Active Substance: ALISKIREN
     Indication: Foetal exposure during pregnancy
     Dosage: 300 [MG/D]; 0-4.6 GESTATIONAL WEEK
     Dates: start: 20111214, end: 20120117
  30. ALISKIREN [Suspect]
     Active Substance: ALISKIREN
     Indication: Foetal exposure during pregnancy
  31. ALISKIREN [Suspect]
     Active Substance: ALISKIREN
     Indication: Foetal exposure during pregnancy
  32. RIVAROXABAN [Suspect]
     Active Substance: RIVAROXABAN
     Indication: Foetal exposure during pregnancy
  33. ASPIRIN [Suspect]
     Active Substance: ASPIRIN
     Indication: Foetal exposure during pregnancy
  34. INNOHEP [Suspect]
     Active Substance: TINZAPARIN SODIUM
     Indication: Foetal exposure during pregnancy
     Dosage: UNK
  35. UNSPECIFIED INGREDIENT [Suspect]
     Active Substance: UNSPECIFIED INGREDIENT
     Indication: Foetal exposure during pregnancy
     Dosage: UNK
  36. UNSPECIFIED INGREDIENT [Suspect]
     Active Substance: UNSPECIFIED INGREDIENT
     Indication: Foetal exposure during pregnancy
     Dosage: UNK
  37. HEPARIN [Suspect]
     Active Substance: HEPARIN SODIUM
     Indication: Product used for unknown indication
  38. RITUXIMAB [Suspect]
     Active Substance: RITUXIMAB
     Indication: Systemic lupus erythematosus
     Dosage: LAST TIME IN DECEMBER 2011: PRE OR PERICONCEPTIONAL
     Dates: end: 201112
  39. CYTOTEC [Concomitant]
     Active Substance: MISOPROSTOL
     Indication: Abortion induced
     Dosage: UNK; 13.6 GESTATIONAL WEEK
     Dates: start: 20120320, end: 20120320
  40. METAMIZOLE [Suspect]
     Active Substance: METAMIZOLE
     Indication: Foetal exposure during pregnancy
     Dosage: UNK; TRIMESTER: FIRST; PROBABLY ONLY IN HOSPITAL IN WEEK 5
  41. CYCLOPHOSPHAMIDE [Concomitant]
     Active Substance: CYCLOPHOSPHAMIDE
     Indication: Systemic lupus erythematosus
     Dosage: 3000 [MG CUMULATIVE]; PRECONCEPTIONAL
     Dates: start: 201104, end: 201108

REACTIONS (8)
  - Cardiac septal defect [Fatal]
  - Foetal exposure during pregnancy [Fatal]
  - Death [Fatal]
  - Ventricular septal defect [Fatal]
  - Congenital cardiovascular anomaly [Fatal]
  - Abortion induced [Fatal]
  - Heart disease congenital [Fatal]
  - Truncus arteriosus persistent [Fatal]
